FAERS Safety Report 24184214 (Version 1)
Quarter: 2024Q3

REPORT INFORMATION
  Report Type: Spontaneous
  Country: US (occurrence: None)
  Receive Date: 20240806
  Receipt Date: 20240806
  Transmission Date: 20241017
  Serious: Yes (Disabling)
  Sender: Public
  Company Number: None

PATIENT
  Age: 63 Year
  Sex: Female
  Weight: 51.75 kg

DRUGS (13)
  1. TRELEGY ELLIPTA [Suspect]
     Active Substance: FLUTICASONE FUROATE\UMECLIDINIUM BROMIDE\VILANTEROL TRIFENATATE
     Indication: Chronic obstructive pulmonary disease
     Dosage: 1 PUFF DAILY RESPIRATORY (INHALATION)
     Route: 055
     Dates: start: 20240630, end: 20240801
  2. ROFLUMILAST [Concomitant]
     Active Substance: ROFLUMILAST
  3. AMLODIPINE [Concomitant]
     Active Substance: AMLODIPINE BESYLATE
  4. NEBIVOLOL [Concomitant]
     Active Substance: NEBIVOLOL
  5. MONTELUKAST [Concomitant]
     Active Substance: MONTELUKAST SODIUM
  6. ATORVASTATIN [Concomitant]
     Active Substance: ATORVASTATIN
  7. ALBUTEROL\IPRATROPIUM [Concomitant]
     Active Substance: ALBUTEROL\IPRATROPIUM
  8. PROLIA [Concomitant]
     Active Substance: DENOSUMAB
  9. CETIRIZINE HYDROCHLORIDE [Concomitant]
     Active Substance: CETIRIZINE HYDROCHLORIDE
  10. METHOCARBAMOL [Concomitant]
     Active Substance: METHOCARBAMOL
  11. CALCIUM [Concomitant]
     Active Substance: CALCIUM
  12. VITAMIN D3 [Concomitant]
     Active Substance: CHOLECALCIFEROL
  13. ASPIRIN [Concomitant]
     Active Substance: ASPIRIN

REACTIONS (8)
  - Arthralgia [None]
  - Neuropathy peripheral [None]
  - Pain in extremity [None]
  - Burning sensation [None]
  - Pain in extremity [None]
  - Back pain [None]
  - Influenza [None]
  - Therapy interrupted [None]

NARRATIVE: CASE EVENT DATE: 20240720
